FAERS Safety Report 5401805-0 (Version None)
Quarter: 2007Q3

REPORT INFORMATION
  Report Type: 
  Country: None (occurrence: None)
  Receive Date: 20070731
  Receipt Date: 20070719
  Transmission Date: 20080115
  Serious: Yes (Other)
  Sender: FDA-Public Use
  Company Number: FR-PFIZER INC-2007060736

PATIENT
  Sex: Female

DRUGS (3)
  1. LYRICA [Suspect]
     Indication: NEURALGIA
  2. ART 50 [Suspect]
  3. AMLODIPINE [Concomitant]

REACTIONS (3)
  - CHROMATURIA [None]
  - OEDEMA PERIPHERAL [None]
  - URINARY TRACT OBSTRUCTION [None]
